FAERS Safety Report 7657406-7 (Version None)
Quarter: 2011Q3

REPORT INFORMATION
  Report Type: 
  Country: None (occurrence: None)
  Receive Date: 20110804
  Receipt Date: 20110614
  Transmission Date: 20111222
  Serious: No
  Sender: FDA-Public Use
  Company Number: US-ASTRAZENECA-2011SE36288

PATIENT
  Age: 64 Year
  Sex: Female
  Weight: 58.1 kg

DRUGS (9)
  1. PRILOSEC [Concomitant]
  2. IMODIUM [Concomitant]
  3. MULTI-VITAMIN [Concomitant]
  4. UBIQUINOL [Concomitant]
  5. SYNTHROID [Concomitant]
  6. VANDETANIB [Suspect]
     Indication: THYROID CANCER
     Route: 048
  7. VANDETANIB [Suspect]
     Route: 048
     Dates: start: 20110507
  8. LOMOTIL [Concomitant]
  9. XGEVA [Concomitant]

REACTIONS (7)
  - FEELING ABNORMAL [None]
  - HOT FLUSH [None]
  - ACNE [None]
  - DIARRHOEA [None]
  - STOMATITIS [None]
  - BLOOD PRESSURE INCREASED [None]
  - RASH [None]
